FAERS Safety Report 9851672 (Version 2)
Quarter: 2014Q2

REPORT INFORMATION
  Report Type: Spontaneous
  Country: US (occurrence: US)
  Receive Date: 20140129
  Receipt Date: 20140422
  Transmission Date: 20141212
  Serious: Yes (Hospitalization)
  Sender: FDA-Public Use
  Company Number: US-ALVOGEN-2014AL000049

PATIENT
  Sex: Female

DRUGS (1)
  1. MACROBID [Suspect]
     Indication: URINARY TRACT INFECTION

REACTIONS (2)
  - Septic shock [Unknown]
  - Drug ineffective [Unknown]
